FAERS Safety Report 21229933 (Version 2)
Quarter: 2023Q4

REPORT INFORMATION
  Report Type: Spontaneous
  Country: US (occurrence: US)
  Receive Date: 20220818
  Receipt Date: 20231013
  Transmission Date: 20240110
  Serious: No
  Sender: FDA-Public Use
  Company Number: US-SA-SAC20220812001431

PATIENT
  Age: 3 Year
  Sex: Male

DRUGS (12)
  1. DUPIXENT [Suspect]
     Active Substance: DUPILUMAB
     Indication: Dermatitis atopic
     Dosage: 300MG EVERY 4 WEEKS
     Route: 058
     Dates: start: 20220730
  2. ALBUTEROL [Concomitant]
     Active Substance: ALBUTEROL
  3. AZITHROMYCIN [Concomitant]
     Active Substance: AZITHROMYCIN
  4. BUDESONIDE [Concomitant]
     Active Substance: BUDESONIDE
  5. CIPROFLOXACIN HYDROCHLORIDE [Concomitant]
     Active Substance: CIPROFLOXACIN HYDROCHLORIDE
  6. NEXIUM I.V. [Concomitant]
     Active Substance: ESOMEPRAZOLE SODIUM
  7. OFLOXACIN [Concomitant]
     Active Substance: OFLOXACIN
  8. SINGULAIR [Concomitant]
     Active Substance: MONTELUKAST SODIUM
  9. TRIAMCINOLONE [Concomitant]
     Active Substance: TRIAMCINOLONE
  10. ZYRTEC [Concomitant]
     Active Substance: CETIRIZINE HYDROCHLORIDE
  11. FLONASE [Concomitant]
     Active Substance: FLUTICASONE PROPIONATE
  12. VITAMINS NOS [Concomitant]
     Active Substance: VITAMINS

REACTIONS (2)
  - Ear infection [Not Recovered/Not Resolved]
  - Otorrhoea [Unknown]
